FAERS Safety Report 9049383 (Version 3)
Quarter: 2013Q1

REPORT INFORMATION
  Report Type: Report from Study
  Country: US (occurrence: US)
  Receive Date: 20130205
  Receipt Date: 20130219
  Transmission Date: 20140127
  Serious: Yes (Hospitalization, Other)
  Sender: FDA-Public Use
  Company Number: US-PFIZER INC-2013039018

PATIENT
  Age: 56 Year
  Sex: Male
  Weight: 70 kg

DRUGS (16)
  1. AXITINIB [Suspect]
     Indication: MALIGNANT MELANOMA
     Dosage: 5.0 MG, BID
     Route: 048
     Dates: start: 20120223, end: 20121009
  2. AXITINIB [Suspect]
     Dosage: 5.0 MG, BID
     Route: 048
     Dates: start: 20121030, end: 20130122
  3. OMNIPAQUE [Suspect]
     Indication: SCAN WITH CONTRAST
     Dosage: 350, 147 CC
     Route: 042
     Dates: start: 20130115, end: 20130115
  4. BENICAR [Concomitant]
     Indication: HYPERTENSION
     Dosage: 20 MG, DAILY
     Route: 048
     Dates: start: 20120926, end: 20130205
  5. SYNTHROID [Concomitant]
     Indication: HYPOTHYROIDISM
     Dosage: 50 MG, 1X/DAY
     Route: 048
     Dates: start: 20121221, end: 20130205
  6. SYNTHROID [Concomitant]
     Dosage: 75 MG, 1X/DAY
     Route: 048
     Dates: start: 20130206
  7. METOPROLOL [Concomitant]
     Indication: HYPERTENSION
     Dosage: 25 MG, 2X/DAY
     Route: 048
     Dates: start: 20120429
  8. IRON [Concomitant]
     Indication: IRON DEFICIENCY
     Dosage: 45 MG, 2X/DAY
     Route: 048
     Dates: start: 20120426
  9. VIAGRA [Concomitant]
     Indication: ERECTILE DYSFUNCTION
     Dosage: 100 MG, AS NEEDED
     Route: 048
  10. SODIUM FLUORIDE [Concomitant]
     Indication: ROUTINE HEALTH MAINTENANCE
     Dosage: 1.1 MG, 1X/DAY
     Route: 048
  11. FOLIC ACID [Concomitant]
     Indication: ROUTINE HEALTH MAINTENANCE
     Dosage: 1 TAB, 1X/DAY
     Route: 048
  12. PREVACID [Concomitant]
     Indication: GASTROOESOPHAGEAL REFLUX DISEASE
     Dosage: 30 MG, 1X/DAY
     Route: 048
  13. PROPECIA [Concomitant]
     Indication: ALOPECIA
     Dosage: 1 MG, 1X/DAY
     Route: 048
  14. COENZYME Q10 [Concomitant]
     Indication: ROUTINE HEALTH MAINTENANCE
     Dosage: 200 MG, 1X/DAY
     Route: 048
  15. ASPIRIN [Concomitant]
     Indication: CARDIOVASCULAR EVENT PROPHYLAXIS
     Dosage: 81 MG, 1X/DAY
     Route: 048
  16. VITAMIN C [Concomitant]
     Indication: ROUTINE HEALTH MAINTENANCE
     Dosage: 500 MG, 1X/DAY
     Route: 048

REACTIONS (1)
  - Blood creatinine increased [Recovered/Resolved]
